FAERS Safety Report 16971070 (Version 2)
Quarter: 2019Q4

REPORT INFORMATION
  Report Type: Spontaneous
  Country: BR (occurrence: BR)
  Receive Date: 20191029
  Receipt Date: 20191218
  Transmission Date: 20200122
  Serious: Yes (Other)
  Sender: FDA-Public Use
  Company Number: BR-GLAXOSMITHKLINE-BR2019AMR195230

PATIENT
  Age: 2 Year
  Sex: Female

DRUGS (1)
  1. FLIXOTIDE [Suspect]
     Active Substance: FLUTICASONE PROPIONATE
     Indication: ASTHMA
     Dosage: UNK, BID (60 DOSES)

REACTIONS (3)
  - Product administration error [Unknown]
  - Asthmatic crisis [Unknown]
  - Drug ineffective [Unknown]
